FAERS Safety Report 9106488 (Version 2)
Quarter: 2013Q2

REPORT INFORMATION
  Report Type: Spontaneous
  Country: US (occurrence: US)
  Receive Date: 20130221
  Receipt Date: 20130419
  Transmission Date: 20140414
  Serious: Yes (Hospitalization, Disabling)
  Sender: FDA-Public Use
  Company Number: US-PFIZER INC-2013062852

PATIENT
  Age: 60 Year
  Sex: Female
  Weight: 45.35 kg

DRUGS (1)
  1. ADVIL [Suspect]
     Indication: PAIN
     Dosage: 200 MG, AS NEEDED

REACTIONS (3)
  - Road traffic accident [Unknown]
  - Poor quality drug administered [Unknown]
  - Product quality issue [Unknown]
